FAERS Safety Report 14331534 (Version 1)
Quarter: 2017Q4

REPORT INFORMATION
  Report Type: Spontaneous
  Country: IT (occurrence: IT)
  Receive Date: 20171228
  Receipt Date: 20171228
  Transmission Date: 20180321
  Serious: Yes (Life-Threatening, Other)
  Sender: FDA-Public Use
  Company Number: IT-GLENMARK PHARMACEUTICALS-2017GMK030184

PATIENT
  Age: 4 Month
  Weight: 5 kg

DRUGS (1)
  1. LIDOCAINE. [Suspect]
     Active Substance: LIDOCAINE
     Indication: ELECTROCARDIOGRAM QT PROLONGED
     Dosage: UNK
     Route: 065

REACTIONS (1)
  - Drug ineffective [Unknown]
